FAERS Safety Report 17849843 (Version 8)
Quarter: 2020Q3

REPORT INFORMATION
  Report Type: Spontaneous
  Country: US (occurrence: US)
  Receive Date: 20200602
  Receipt Date: 20200923
  Transmission Date: 20201103
  Serious: No
  Sender: FDA-Public Use
  Company Number: US-PFIZER INC-2020215139

PATIENT
  Age: 80 Year
  Sex: Female

DRUGS (1)
  1. IBRANCE [Suspect]
     Active Substance: PALBOCICLIB
     Indication: BREAST CANCER FEMALE
     Dosage: 125 MG, CYCLIC (DAILY FOR 21 DAYS ON, 7 DAYS OFF ON A 28 DAY CYCLE)
     Dates: start: 20200528

REACTIONS (15)
  - Abdominal discomfort [Unknown]
  - Somnolence [Recovered/Resolved]
  - Vertigo [Unknown]
  - Fatigue [Recovered/Resolved]
  - Constipation [Unknown]
  - Dizziness postural [Unknown]
  - Dry mouth [Unknown]
  - Feeling abnormal [Unknown]
  - Myalgia [Unknown]
  - Peripheral swelling [Recovering/Resolving]
  - Muscular weakness [Not Recovered/Not Resolved]
  - Muscle fatigue [Unknown]
  - Arthropod bite [Unknown]
  - Dizziness [Not Recovered/Not Resolved]
  - Joint swelling [Recovering/Resolving]

NARRATIVE: CASE EVENT DATE: 2020
